FAERS Safety Report 4843080-1 (Version None)
Quarter: 2005Q4

REPORT INFORMATION
  Report Type: 
  Country: None (occurrence: None)
  Receive Date: 20051201
  Receipt Date: 20051024
  Transmission Date: 20060501
  Serious: Yes (Hospitalization)
  Sender: FDA-Public Use
  Company Number: US-ABBOTT-05P-163-0314867-00

PATIENT
  Age: 50 Year
  Sex: Female
  Weight: 64.922 kg

DRUGS (8)
  1. DEPAKOTE ER [Suspect]
     Indication: ANXIETY
     Route: 048
     Dates: start: 20030902, end: 20051115
  2. DEPAKOTE ER [Suspect]
     Indication: DEPRESSION
     Route: 048
  3. XANAX [Concomitant]
     Indication: DRUG USE FOR UNKNOWN INDICATION
     Dosage: NOT REPORTED
     Route: 048
  4. TRANYLCYPROMINE SULFATE [Concomitant]
     Indication: DRUG USE FOR UNKNOWN INDICATION
     Dates: start: 20030715, end: 20050801
  5. TRILEPTAL [Concomitant]
     Indication: DRUG USE FOR UNKNOWN INDICATION
     Dates: start: 20050707
  6. GABITRIL [Concomitant]
     Indication: DRUG USE FOR UNKNOWN INDICATION
     Dates: start: 20031119, end: 20031201
  7. ALPRAZOLAM [Concomitant]
     Indication: DRUG USE FOR UNKNOWN INDICATION
     Dates: start: 20030630
  8. TOPIRAMATE [Concomitant]
     Indication: DRUG USE FOR UNKNOWN INDICATION
     Dates: start: 20030923, end: 20040326

REACTIONS (7)
  - ANKLE FRACTURE [None]
  - DIZZINESS [None]
  - FACE INJURY [None]
  - FALL [None]
  - LIMB INJURY [None]
  - MEDICATION RESIDUE [None]
  - TOOTH LOSS [None]
